FAERS Safety Report 6275955-3 (Version None)
Quarter: 2009Q3

REPORT INFORMATION
  Report Type: 
  Country: None (occurrence: None)
  Receive Date: 20090721
  Receipt Date: 20090715
  Transmission Date: 20100115
  Serious: Yes (Death)
  Sender: FDA-Public Use
  Company Number: JP-ASTRAZENECA-2009SE03847

PATIENT
  Age: 28950 Day
  Sex: Female

DRUGS (7)
  1. CRESTOR [Suspect]
     Indication: HYPERCHOLESTEROLAEMIA
     Route: 048
     Dates: start: 20090414, end: 20090624
  2. ASPIRIN [Suspect]
     Route: 048
     Dates: end: 20090624
  3. AMLODIPINE [Suspect]
     Indication: HYPERTENSION
     Route: 048
     Dates: end: 20090624
  4. ACECOL [Suspect]
     Indication: HYPERTENSION
     Route: 048
     Dates: end: 20090624
  5. ALFAROL [Suspect]
     Route: 048
     Dates: end: 20090624
  6. ERISPAN [Concomitant]
     Route: 048
     Dates: end: 20090624
  7. GASUISAN [Concomitant]
     Route: 048
     Dates: end: 20090624

REACTIONS (1)
  - PANCREATITIS ACUTE [None]
